FAERS Safety Report 7168795-4 (Version None)
Quarter: 2010Q4

REPORT INFORMATION
  Report Type: 
  Country: None (occurrence: None)
  Receive Date: 20101216
  Receipt Date: 20100205
  Transmission Date: 20110411
  Serious: No
  Sender: FDA-Public Use
  Company Number: US-AMGEN-TCS387603

PATIENT

DRUGS (4)
  1. ENBREL [Suspect]
     Indication: JUVENILE ARTHRITIS
     Dosage: .6 ML, 2 TIMES/WK
     Route: 058
     Dates: start: 20100107
  2. OMEPRAZOLE [Concomitant]
     Dosage: UNK UNK, UNK
     Dates: start: 20090201
  3. MIRALAX [Concomitant]
     Dosage: UNK UNK, UNK
     Dates: start: 20081201
  4. MULTI-VITAMINS [Concomitant]
     Dosage: UNK UNK, UNK
     Dates: start: 20090501

REACTIONS (3)
  - INJECTION SITE ERYTHEMA [None]
  - INJECTION SITE HAEMATOMA [None]
  - INJECTION SITE SWELLING [None]
